FAERS Safety Report 11173618 (Version 1)
Quarter: 2015Q2

REPORT INFORMATION
  Report Type: Spontaneous
  Country: US (occurrence: US)
  Receive Date: 20150609
  Receipt Date: 20150609
  Transmission Date: 20150821
  Serious: Yes (Other)
  Sender: FDA-Public Use
  Company Number: US-PFIZER INC-2015188306

PATIENT
  Age: 67 Year
  Sex: Female
  Weight: 68 kg

DRUGS (1)
  1. LYRICA [Suspect]
     Active Substance: PREGABALIN
     Indication: COMPLEX REGIONAL PAIN SYNDROME
     Dosage: 350 MG, DAILY

REACTIONS (7)
  - Haematoma [Unknown]
  - Back injury [Unknown]
  - Intentional product misuse [Unknown]
  - Haemorrhage [Unknown]
  - Thyroid disorder [Unknown]
  - Neck injury [Unknown]
  - Concussion [Unknown]

NARRATIVE: CASE EVENT DATE: 201204
